FAERS Safety Report 9363109 (Version 1)
Quarter: 2013Q2

REPORT INFORMATION
  Report Type: Report from Study
  Country: ES (occurrence: ES)
  Receive Date: 20130624
  Receipt Date: 20130624
  Transmission Date: 20140414
  Serious: Yes (Other)
  Sender: FDA-Public Use
  Company Number: ES-ROCHE-1238841

PATIENT
  Sex: 0

DRUGS (4)
  1. TRASTUZUMAB [Suspect]
     Indication: BREAST CANCER METASTATIC
     Dosage: PREVIOUS TREATMENT
     Route: 065
  2. TRASTUZUMAB [Suspect]
     Route: 065
  3. BKM120 [Suspect]
     Indication: BREAST CANCER METASTATIC
     Dosage: 5 PATIENTS
     Route: 065
  4. BKM120 [Suspect]
     Dosage: 12 PATIENTS
     Route: 065

REACTIONS (6)
  - Asthenia [Unknown]
  - Mood altered [Unknown]
  - Rash [Unknown]
  - Gamma-glutamyltransferase increased [Unknown]
  - Hypokalaemia [Unknown]
  - Hypersensitivity [Unknown]
